FAERS Safety Report 10965543 (Version 1)
Quarter: 2015Q1

REPORT INFORMATION
  Report Type: Spontaneous
  Country: US (occurrence: None)
  Receive Date: 20150327
  Receipt Date: 20150327
  Transmission Date: 20150721
  Serious: Yes (Hospitalization, Disabling)
  Sender: FDA-Public Use
  Company Number: None

PATIENT
  Age: 54 Year
  Sex: Female
  Weight: 220 kg

DRUGS (5)
  1. PROLIA [Suspect]
     Active Substance: DENOSUMAB
     Indication: OSTEOPOROSIS
     Dosage: 1 INJECTION    EVERY 6 MONTHS  INJECTION
     Dates: start: 20140730
  2. LEVOTHYROXINE [Concomitant]
     Active Substance: LEVOTHYROXINE
  3. ECXILUNTCH [Concomitant]
  4. ATIVAN [Concomitant]
     Active Substance: LORAZEPAM
  5. ZOLOFT [Concomitant]
     Active Substance: SERTRALINE HYDROCHLORIDE

REACTIONS (14)
  - Dyspnoea [None]
  - Insomnia [None]
  - Pain [None]
  - Nausea [None]
  - Dizziness [None]
  - Carbon dioxide decreased [None]
  - Hypoaesthesia [None]
  - Chest discomfort [None]
  - Pain in jaw [None]
  - Decreased appetite [None]
  - Ear pain [None]
  - Headache [None]
  - Retching [None]
  - Cough [None]

NARRATIVE: CASE EVENT DATE: 20140731
